FAERS Safety Report 18942246 (Version 13)
Quarter: 2022Q4

REPORT INFORMATION
  Report Type: Report from Study
  Country: US (occurrence: US)
  Receive Date: 20210225
  Receipt Date: 20221117
  Transmission Date: 20230113
  Serious: No
  Sender: FDA-Public Use
  Company Number: NVSC2021US037692

PATIENT
  Sex: Female

DRUGS (2)
  1. KESIMPTA [Suspect]
     Active Substance: OFATUMUMAB
     Indication: Relapsing multiple sclerosis
     Dosage: UNK
     Route: 065
     Dates: start: 20210203
  2. KESIMPTA [Suspect]
     Active Substance: OFATUMUMAB
     Indication: Multiple sclerosis
     Dosage: 20 MG
     Route: 058

REACTIONS (12)
  - Exposure to SARS-CoV-2 [Unknown]
  - Musculoskeletal stiffness [Unknown]
  - Tremor [Unknown]
  - Pain [Unknown]
  - Muscle spasms [Unknown]
  - Nightmare [Unknown]
  - Lacrimation increased [Unknown]
  - Pain in extremity [Unknown]
  - Amnesia [Unknown]
  - Headache [Unknown]
  - COVID-19 [Unknown]
  - Product dose omission issue [Unknown]
